FAERS Safety Report 12922687 (Version 1)
Quarter: 2016Q4

REPORT INFORMATION
  Report Type: Spontaneous
  Country: US (occurrence: US)
  Receive Date: 20161108
  Receipt Date: 20161108
  Transmission Date: 20170207
  Serious: Yes (Other)
  Sender: FDA-Public Use
  Company Number: None

PATIENT
  Age: 43 Year
  Sex: Female
  Weight: 81 kg

DRUGS (1)
  1. FERRLECIT [Suspect]
     Active Substance: SODIUM FERRIC GLUCONATE COMPLEX
     Indication: ANAEMIA
     Dosage: ?          OTHER FREQUENCY:ONE TIME ONLY;?
     Route: 041
     Dates: start: 20161107

REACTIONS (4)
  - Chest pain [None]
  - Musculoskeletal pain [None]
  - Neck pain [None]
  - Infusion related reaction [None]

NARRATIVE: CASE EVENT DATE: 20161107
